FAERS Safety Report 4994933-5 (Version None)
Quarter: 2006Q2

REPORT INFORMATION
  Report Type: 
  Country: None (occurrence: None)
  Receive Date: 20060508
  Receipt Date: 20060426
  Transmission Date: 20061013
  Serious: Yes (Other)
  Sender: FDA-Public Use
  Company Number: US-KINGPHARMUSA00001-K200600533

PATIENT
  Age: 37 Year
  Sex: Female

DRUGS (3)
  1. CORTISPORIN [Suspect]
     Dosage: 1 DROP, QID
     Route: 001
  2. CLARITIN [Concomitant]
  3. ELTROXIN ^GLAXO^ [Concomitant]

REACTIONS (3)
  - HEADACHE [None]
  - HYPERACUSIS [None]
  - MIGRAINE [None]
